FAERS Safety Report 8584970-6 (Version None)
Quarter: 2012Q3

REPORT INFORMATION
  Report Type: 
  Country: None (occurrence: None)
  Receive Date: 20120810
  Receipt Date: 20120802
  Transmission Date: 20120928
  Serious: Yes (Hospitalization)
  Sender: FDA-Public Use
  Company Number: FR-VERTEX PHARMACEUTICALS INC.-000000000000000854

PATIENT
  Sex: Female
  Weight: 78 kg

DRUGS (8)
  1. INCIVO [Suspect]
     Indication: HEPATITIS C
     Dosage: DOSAGE FORM: TABLET
     Route: 048
     Dates: start: 20110928, end: 20111222
  2. PEGASYS [Concomitant]
     Indication: HEPATITIS C
     Dates: start: 20110928
  3. TOCO [Concomitant]
     Indication: INSULIN RESISTANCE
     Dosage: DOSAGE FORM: TABLET
     Dates: start: 20110502
  4. PROPRANOLOL [Concomitant]
     Indication: VARICES OESOPHAGEAL
     Dates: start: 20070302
  5. DEXERYL [Concomitant]
     Indication: DRY SKIN PROPHYLAXIS
     Dosage: DOSAGE FORM: CREAM
     Dates: start: 20110915
  6. COPEGUS [Concomitant]
     Indication: HEPATITIS C
     Dates: start: 20110928
  7. VITAMIN D [Concomitant]
     Indication: VITAMIN SUPPLEMENTATION
     Dates: start: 20110502
  8. ACETAMINOPHEN [Concomitant]
     Indication: ANTIVIRAL PROPHYLAXIS
     Dates: start: 20110915

REACTIONS (1)
  - LUNG DISORDER [None]
